FAERS Safety Report 4576123-3 (Version None)
Quarter: 2005Q1

REPORT INFORMATION
  Report Type: 
  Country: None (occurrence: None)
  Receive Date: 20050204
  Receipt Date: 20050126
  Transmission Date: 20050727
  Serious: Yes (Hospitalization)
  Sender: FDA-Public Use
  Company Number: GXKR2005IT00505

PATIENT
  Age: 54 Year
  Sex: Female

DRUGS (1)
  1. OMEPRAZOLE [Suspect]
     Dosage: ORAL
     Route: 048

REACTIONS (6)
  - CONFUSIONAL STATE [None]
  - OCULAR HYPERAEMIA [None]
  - RETINAL HAEMORRHAGE [None]
  - RETINAL VEIN OCCLUSION [None]
  - VERTIGO [None]
  - VISUAL ACUITY REDUCED [None]
